FAERS Safety Report 4575008-6 (Version None)
Quarter: 2005Q1

REPORT INFORMATION
  Report Type: 
  Country: None (occurrence: None)
  Receive Date: 20050208
  Receipt Date: 20041208
  Transmission Date: 20050727
  Serious: Yes (Hospitalization)
  Sender: FDA-Public Use
  Company Number: GB-BRISTOL-MYERS SQUIBB COMPANY-12788808

PATIENT
  Age: 62 Year
  Sex: Female
  Weight: 71 kg

DRUGS (8)
  1. CISPLATIN [Suspect]
     Indication: ENDOMETRIAL CANCER
     Dosage: THERAPY FROM 05-JUL-2004 TO 19-NOV-2004 (CYC 6) CUM DOSE=540 MG
     Route: 042
     Dates: start: 20041119, end: 20041119
  2. PACLITAXEL [Suspect]
     Indication: ENDOMETRIAL CANCER
     Dosage: THERAPY FROM 05-JUL-2004 TO 19-NOV-2004 (CYC 6) CUM DOSE=1620 MG
     Route: 042
     Dates: start: 20041119, end: 20041119
  3. DOXORUBICIN [Suspect]
     Indication: ENDOMETRIAL CANCER
     Dosage: THERAPY FROM 05-JUL-2004 TO 19-NOV-2004 (CYC 6) CUM DOSE=480 MG
     Route: 042
     Dates: start: 20041119, end: 20041119
  4. AMITRIPTYLINE [Concomitant]
  5. CODEINE PHOSPHATE [Concomitant]
  6. ACETAMINOPHEN [Concomitant]
  7. METOCLOPRAMIDE [Concomitant]
  8. ONDANSETRON [Concomitant]

REACTIONS (4)
  - ABDOMINAL ADHESIONS [None]
  - INTESTINAL OBSTRUCTION [None]
  - NEUTROPENIC COLITIS [None]
  - NEUTROPENIC SEPSIS [None]
